FAERS Safety Report 7603890-4 (Version None)
Quarter: 2011Q3

REPORT INFORMATION
  Report Type: 
  Country: None (occurrence: None)
  Receive Date: 20110712
  Receipt Date: 20110708
  Transmission Date: 20111222
  Serious: No
  Sender: FDA-Public Use
  Company Number: US-PFIZER INC-2011154569

PATIENT
  Age: 56 Year
  Sex: Male
  Weight: 99.773 kg

DRUGS (3)
  1. ADVIL LIQUI-GELS [Suspect]
     Indication: NECK PAIN
  2. ADVIL LIQUI-GELS [Suspect]
     Indication: BACK PAIN
     Dosage: 200 MG, 2X/DAY
     Route: 048
     Dates: start: 20110629, end: 20110630
  3. ADVIL LIQUI-GELS [Suspect]
     Indication: TOOTHACHE

REACTIONS (1)
  - NAUSEA [None]
